FAERS Safety Report 24938358 (Version 1)
Quarter: 2025Q1

REPORT INFORMATION
  Report Type: Spontaneous
  Country: FR (occurrence: FR)
  Receive Date: 20250206
  Receipt Date: 20250206
  Transmission Date: 20250408
  Serious: Yes (Hospitalization, Other)
  Sender: BRISTOL-MYERS SQUIBB COMPANY
  Company Number: FR-BRISTOL-MYERS SQUIBB COMPANY-2025-003175

PATIENT
  Age: 16 Year
  Sex: Female

DRUGS (2)
  1. YERVOY [Suspect]
     Active Substance: IPILIMUMAB
     Indication: Glioma
  2. OPDIVO [Suspect]
     Active Substance: NIVOLUMAB
     Indication: Glioma

REACTIONS (4)
  - Off label use [Unknown]
  - Diabetes insipidus [Recovered/Resolved]
  - Hypothyroidism [Recovered/Resolved]
  - Neurological decompensation [Unknown]

NARRATIVE: CASE EVENT DATE: 20241219
